FAERS Safety Report 25970400 (Version 4)
Quarter: 2025Q4

REPORT INFORMATION
  Report Type: Report from Study
  Country: US (occurrence: None)
  Receive Date: 20251028
  Receipt Date: 20251128
  Transmission Date: 20260117
  Serious: Yes (Hospitalization, Other)
  Sender: UCB
  Company Number: US-UCBSA-2025058618

PATIENT
  Age: 26 Year

DRUGS (4)
  1. FENFLURAMINE [Suspect]
     Active Substance: FENFLURAMINE
     Indication: Lennox-Gastaut syndrome
     Dosage: 2 ML QAM + 1 ML QPM
  2. FENFLURAMINE [Suspect]
     Active Substance: FENFLURAMINE
     Dosage: 2 ML QAM + 1 ML QPM
  3. FENFLURAMINE [Suspect]
     Active Substance: FENFLURAMINE
     Dosage: 1 MILLILITER, ONCE DAILY (QD)
  4. DALBAVANCIN [Suspect]
     Active Substance: DALBAVANCIN
     Indication: Staphylococcal infection
     Dosage: UNK

REACTIONS (20)
  - COVID-19 [Recovered/Resolved]
  - Staphylococcal infection [Recovered/Resolved]
  - Hospitalisation [Recovered/Resolved]
  - Gastrointestinal tube insertion [Recovered/Resolved]
  - Thrombosis [Not Recovered/Not Resolved]
  - Mechanical ventilation [Recovered/Resolved]
  - Seizure [Not Recovered/Not Resolved]
  - Skin laceration [Not Recovered/Not Resolved]
  - Gastrooesophageal reflux disease [Not Recovered/Not Resolved]
  - Heart rate increased [Recovering/Resolving]
  - Hypotension [Recovering/Resolving]
  - Pyrexia [Not Recovered/Not Resolved]
  - Aspiration [Recovered/Resolved]
  - Pneumonia [Recovered/Resolved]
  - Secretion discharge [Not Recovered/Not Resolved]
  - Jejunostomy [Not Recovered/Not Resolved]
  - Weight decreased [Not Recovered/Not Resolved]
  - Product use issue [Unknown]
  - Adverse drug reaction [Not Recovered/Not Resolved]
  - Off label use [Unknown]
